FAERS Safety Report 10007906 (Version 1)
Quarter: 2014Q1

REPORT INFORMATION
  Report Type: Spontaneous
  Country: DE (occurrence: DE)
  Receive Date: 20140313
  Receipt Date: 20140313
  Transmission Date: 20141002
  Serious: Yes (Hospitalization)
  Sender: FDA-Public Use
  Company Number: DE-BRISTOL-MYERS SQUIBB COMPANY-20412391

PATIENT
  Sex: Male

DRUGS (3)
  1. BYETTA PEN DISPOSABLE [Suspect]
     Indication: DIABETES MELLITUS
  2. METFORMIN HCL [Suspect]
  3. INSULIN [Suspect]

REACTIONS (2)
  - Arterial occlusive disease [Unknown]
  - Blood glucose increased [Unknown]
